FAERS Safety Report 8998006 (Version 4)
Quarter: 2013Q3

REPORT INFORMATION
  Report Type: Spontaneous
  Country: US (occurrence: US)
  Receive Date: 20130104
  Receipt Date: 20130920
  Transmission Date: 20140515
  Serious: Yes (Hospitalization, Disabling, Other)
  Sender: FDA-Public Use
  Company Number: US-009507513-1301USA000751

PATIENT
  Sex: Female
  Weight: 68.27 kg

DRUGS (4)
  1. FOSAMAX [Suspect]
     Indication: OSTEOPOROSIS
     Dosage: 70 MG, QW
     Route: 048
     Dates: start: 20001219, end: 201107
  2. FOSAMAX [Suspect]
     Dosage: 40 MG, UNK
     Route: 048
  3. FOSAMAX [Suspect]
     Dosage: 10 MG, UNK
     Route: 048
     Dates: start: 200005, end: 20001219
  4. XYZAL [Concomitant]
     Indication: HYPERSENSITIVITY
     Dosage: UNK
     Dates: start: 201011, end: 201012

REACTIONS (87)
  - Femur fracture [Not Recovered/Not Resolved]
  - Intramedullary rod insertion [Not Recovered/Not Resolved]
  - Femur fracture [Not Recovered/Not Resolved]
  - Intramedullary rod insertion [Not Recovered/Not Resolved]
  - Knee arthroplasty [Unknown]
  - Deafness [Unknown]
  - Haemorrhagic anaemia [Unknown]
  - Renal failure acute [Unknown]
  - Iron deficiency anaemia [Not Recovered/Not Resolved]
  - Low turnover osteopathy [Not Recovered/Not Resolved]
  - Osteoporosis [Not Recovered/Not Resolved]
  - Stress fracture [Not Recovered/Not Resolved]
  - Femur fracture [Not Recovered/Not Resolved]
  - Hospitalisation [Unknown]
  - Myocardial infarction [Unknown]
  - Acute myocardial infarction [Unknown]
  - Coronary artery disease [Unknown]
  - Hypertension [Unknown]
  - Transfusion [Unknown]
  - Hypercholesterolaemia [Unknown]
  - Adverse event [Unknown]
  - Insomnia [Unknown]
  - Ear infection [Unknown]
  - Inflammation [Unknown]
  - Infection [Unknown]
  - Skin disorder [Unknown]
  - Anxiety [Unknown]
  - Pain [Unknown]
  - Cough [Unknown]
  - Depression [Unknown]
  - Dry skin [Unknown]
  - Lice infestation [Unknown]
  - Thyroid disorder [Unknown]
  - Bronchitis [Unknown]
  - Skin infection [Unknown]
  - Urine analysis abnormal [Unknown]
  - C-reactive protein increased [Unknown]
  - Cough [Recovered/Resolved]
  - White blood cells urine [Unknown]
  - Overdose [Unknown]
  - Device breakage [Unknown]
  - Medical device discomfort [Unknown]
  - Medical device removal [Unknown]
  - Arteriosclerosis [Unknown]
  - Syncope [Unknown]
  - Somnambulism [Unknown]
  - Urinary tract infection [Unknown]
  - Aortic valve disease [Unknown]
  - Dysthymic disorder [Unknown]
  - Enterococcal infection [Unknown]
  - Electrocardiogram abnormal [Unknown]
  - Osteoarthritis [Unknown]
  - Exostosis [Unknown]
  - Osteoarthritis [Unknown]
  - Localised infection [Unknown]
  - Electrocardiogram ST-T change [Unknown]
  - Cardiac murmur [Unknown]
  - Haemorrhagic anaemia [Recovering/Resolving]
  - Mental disorder [Unknown]
  - Hypothyroidism [Unknown]
  - Hyperthyroidism [Unknown]
  - Anxiety [Unknown]
  - Gastric disorder [Unknown]
  - Muscle tightness [Unknown]
  - Faeces discoloured [Unknown]
  - Hypokalaemia [Unknown]
  - Medical device change [Unknown]
  - Muscular weakness [Unknown]
  - Hypophagia [Unknown]
  - Lipase increased [Unknown]
  - Amylase increased [Unknown]
  - Blood glucose increased [Unknown]
  - Contusion [Unknown]
  - Hysterectomy [Unknown]
  - Cataract operation [Unknown]
  - Chest pain [Unknown]
  - Atrial fibrillation [Unknown]
  - Cataract operation [Unknown]
  - Muscle spasms [Recovering/Resolving]
  - Abdominal discomfort [Unknown]
  - Muscle spasms [Unknown]
  - Arthralgia [Unknown]
  - Gastrooesophageal reflux disease [Unknown]
  - Drug hypersensitivity [Unknown]
  - Back pain [Not Recovered/Not Resolved]
  - Pain in extremity [Unknown]
  - Constipation [Unknown]
